FAERS Safety Report 4675316-4 (Version None)
Quarter: 2005Q2

REPORT INFORMATION
  Report Type: 
  Country: None (occurrence: None)
  Receive Date: 20050527
  Receipt Date: 20050518
  Transmission Date: 20051028
  Serious: Yes (Hospitalization)
  Sender: FDA-Public Use
  Company Number: JP-ABBOTT-05P-087-0300778-00

PATIENT
  Age: 40 Year
  Sex: Male

DRUGS (4)
  1. TRICOR [Suspect]
     Indication: HYPERLIPIDAEMIA
     Route: 048
  2. VITAMIN A [Concomitant]
     Indication: DRUG USE FOR UNKNOWN INDICATION
  3. CHLORPROMAZINE HCL [Concomitant]
     Indication: DRUG USE FOR UNKNOWN INDICATION
  4. SULPIRIDE [Concomitant]
     Indication: DRUG USE FOR UNKNOWN INDICATION

REACTIONS (2)
  - BLOOD CREATINE PHOSPHOKINASE INCREASED [None]
  - NEUROLEPTIC MALIGNANT SYNDROME [None]
